FAERS Safety Report 21486763 (Version 2)
Quarter: 2022Q4

REPORT INFORMATION
  Report Type: Report from Study
  Country: US (occurrence: US)
  Receive Date: 20221020
  Receipt Date: 20221103
  Transmission Date: 20230112
  Serious: Yes (Hospitalization)
  Sender: FDA-Public Use
  Company Number: US-TAKEDA-2022TUS058666

PATIENT
  Age: 39 Year
  Sex: Female

DRUGS (12)
  1. TEDUGLUTIDE [Suspect]
     Active Substance: TEDUGLUTIDE
     Indication: Short-bowel syndrome
     Dosage: 2.41 MILLIGRAM, QD
     Route: 058
     Dates: start: 202204
  2. TEDUGLUTIDE [Suspect]
     Active Substance: TEDUGLUTIDE
     Indication: Short-bowel syndrome
     Dosage: 2.41 MILLIGRAM, QD
     Route: 058
     Dates: start: 202204
  3. TEDUGLUTIDE [Suspect]
     Active Substance: TEDUGLUTIDE
     Indication: Short-bowel syndrome
     Dosage: 2.41 MILLIGRAM, QD
     Route: 058
     Dates: start: 202204
  4. TEDUGLUTIDE [Suspect]
     Active Substance: TEDUGLUTIDE
     Indication: Short-bowel syndrome
     Dosage: 2.41 MILLIGRAM, QD
     Route: 058
     Dates: start: 202204
  5. TEDUGLUTIDE [Suspect]
     Active Substance: TEDUGLUTIDE
     Indication: Post procedural complication
     Dosage: 2.41 MILLIGRAM, QD
     Route: 058
     Dates: start: 20220726
  6. TEDUGLUTIDE [Suspect]
     Active Substance: TEDUGLUTIDE
     Indication: Post procedural complication
     Dosage: 2.41 MILLIGRAM, QD
     Route: 058
     Dates: start: 20220726
  7. TEDUGLUTIDE [Suspect]
     Active Substance: TEDUGLUTIDE
     Indication: Post procedural complication
     Dosage: 2.41 MILLIGRAM, QD
     Route: 058
     Dates: start: 20220726
  8. TEDUGLUTIDE [Suspect]
     Active Substance: TEDUGLUTIDE
     Indication: Post procedural complication
     Dosage: 2.41 MILLIGRAM, QD
     Route: 058
     Dates: start: 20220726
  9. TEDUGLUTIDE [Suspect]
     Active Substance: TEDUGLUTIDE
     Dosage: 2.41 MILLIGRAM, QD
     Route: 058
     Dates: start: 202207
  10. TEDUGLUTIDE [Suspect]
     Active Substance: TEDUGLUTIDE
     Dosage: 2.41 MILLIGRAM, QD
     Route: 058
     Dates: start: 202207
  11. TEDUGLUTIDE [Suspect]
     Active Substance: TEDUGLUTIDE
     Dosage: 2.41 MILLIGRAM, QD
     Route: 058
     Dates: start: 202207
  12. TEDUGLUTIDE [Suspect]
     Active Substance: TEDUGLUTIDE
     Dosage: 2.41 MILLIGRAM, QD
     Route: 058
     Dates: start: 202207

REACTIONS (5)
  - Abdominal pain upper [Unknown]
  - Product dose omission issue [Unknown]
  - Adverse event [Recovered/Resolved]
  - Injection site nodule [Recovered/Resolved]
  - Product storage error [Unknown]

NARRATIVE: CASE EVENT DATE: 20220801
